FAERS Safety Report 12963872 (Version 1)
Quarter: 2016Q4

REPORT INFORMATION
  Report Type: Spontaneous
  Country: TR (occurrence: TR)
  Receive Date: 20161122
  Receipt Date: 20161122
  Transmission Date: 20170207
  Serious: Yes (Other)
  Sender: FDA-Public Use
  Company Number: TR-SCIEGEN PHARMACEUTICALS INC-2016SCILIT00582

PATIENT
  Age: 15 Year
  Sex: Female

DRUGS (8)
  1. RISPERIDONE. [Concomitant]
     Active Substance: RISPERIDONE
     Indication: PRODUCT USED FOR UNKNOWN INDICATION
     Dosage: 4 MG, QD
     Route: 065
  2. VALPROIC ACID. [Concomitant]
     Active Substance: VALPROIC ACID
     Indication: EPILEPSY
     Dosage: 500 MG, QD
     Route: 065
  3. CLOZAPINE. [Suspect]
     Active Substance: CLOZAPINE
     Dosage: 400 MG, QD IN TWO MONTHS
     Route: 065
  4. ARIPIPRAZOLE. [Suspect]
     Active Substance: ARIPIPRAZOLE
     Indication: PRODUCT USED FOR UNKNOWN INDICATION
     Dosage: 20 MG, QD
     Route: 065
  5. CLOZAPINE. [Suspect]
     Active Substance: CLOZAPINE
     Indication: PRODUCT USED FOR UNKNOWN INDICATION
     Dosage: 12.5 MG, UNK
     Route: 065
  6. CLOZAPINE. [Suspect]
     Active Substance: CLOZAPINE
     Dosage: 200 MG TITRATED IN TWO WEEKS
     Route: 065
  7. PALIPERIDONE. [Concomitant]
     Active Substance: PALIPERIDONE
     Indication: PRODUCT USED FOR UNKNOWN INDICATION
     Dosage: 6 MG, QD
     Route: 065
  8. CLOZAPINE. [Suspect]
     Active Substance: CLOZAPINE
     Dosage: 250 MG, QD
     Route: 065

REACTIONS (10)
  - Suicide attempt [Recovering/Resolving]
  - Schizophrenia [Recovering/Resolving]
  - Sedation [Unknown]
  - Insomnia [Recovering/Resolving]
  - Hallucination, auditory [Recovering/Resolving]
  - Drug ineffective [Recovering/Resolving]
  - Salivary hypersecretion [Unknown]
  - Psychotic disorder [Recovering/Resolving]
  - Fear [Recovering/Resolving]
  - Persecutory delusion [Recovering/Resolving]
